FAERS Safety Report 6026628-3 (Version None)
Quarter: 2008Q4

REPORT INFORMATION
  Report Type: 
  Country: None (occurrence: None)
  Receive Date: 20081231
  Receipt Date: 20081218
  Transmission Date: 20090506
  Serious: Yes (Other)
  Sender: FDA-Public Use
  Company Number: MC200800587

PATIENT

DRUGS (4)
  1. ANGIOMAX [Suspect]
     Indication: DEEP VEIN THROMBOSIS
  2. ANGIOMAX [Suspect]
     Indication: HEART VALVE REPLACEMENT
  3. ANGIOMAX [Suspect]
     Indication: HEPARIN-INDUCED THROMBOCYTOPENIA
  4. TPN [Concomitant]

REACTIONS (1)
  - JAUNDICE CHOLESTATIC [None]
